FAERS Safety Report 9422566 (Version 3)
Quarter: 2014Q1

REPORT INFORMATION
  Report Type: Report from Study
  Country: US (occurrence: US)
  Receive Date: 20130726
  Receipt Date: 20140318
  Transmission Date: 20141002
  Serious: Yes (Death, Hospitalization)
  Sender: FDA-Public Use
  Company Number: US-JNJFOC-20130113744

PATIENT
  Age: 82 Year
  Sex: Male
  Weight: 68.6 kg

DRUGS (3)
  1. ABIRATERONE ACETATE [Suspect]
     Indication: PROSTATE CANCER METASTATIC
     Route: 048
     Dates: start: 20121121, end: 20121220
  2. PREDNISONE [Concomitant]
     Indication: PROSTATE CANCER METASTATIC
     Route: 065
     Dates: start: 20121121, end: 20121220
  3. PREDNISONE [Concomitant]
     Indication: PROSTATE CANCER METASTATIC
     Route: 065

REACTIONS (5)
  - Decreased appetite [Fatal]
  - Hypokalaemia [Recovered/Resolved]
  - Vomiting [Unknown]
  - Nausea [Unknown]
  - Fatigue [Unknown]
